FAERS Safety Report 9239520 (Version 2)
Quarter: 2013Q2

REPORT INFORMATION
  Report Type: Spontaneous
  Country: IT (occurrence: IT)
  Receive Date: 20130418
  Receipt Date: 20130508
  Transmission Date: 20140414
  Serious: Yes (Hospitalization, Other)
  Sender: FDA-Public Use
  Company Number: IT-BRISTOL-MYERS SQUIBB COMPANY-18768861

PATIENT
  Age: 57 Year
  Sex: Female

DRUGS (6)
  1. COUMADIN TABS 5 MG [Suspect]
     Indication: ATRIAL FIBRILLATION
     Route: 048
     Dates: start: 20101231, end: 20121231
  2. AUGMENTIN [Interacting]
     Indication: INFLUENZA
     Dosage: 1DF=875/125 MG TABLETS
     Route: 048
     Dates: start: 20121226, end: 20121231
  3. EUTIROX [Concomitant]
  4. LANOXIN [Concomitant]
  5. ALTIAZEM [Concomitant]
  6. COAPROVEL [Concomitant]

REACTIONS (3)
  - Muscle haemorrhage [Recovered/Resolved]
  - Hypocoagulable state [Recovered/Resolved]
  - Drug interaction [Recovered/Resolved]
